FAERS Safety Report 7641483-3 (Version None)
Quarter: 2011Q3

REPORT INFORMATION
  Report Type: 
  Country: None (occurrence: None)
  Receive Date: 20110728
  Receipt Date: 20110722
  Transmission Date: 20111222
  Serious: Yes (Other)
  Sender: FDA-Public Use
  Company Number: FR-PFIZER INC-2011166719

PATIENT
  Age: 39 Year
  Sex: Female

DRUGS (5)
  1. PREDNISOLONE [Suspect]
     Dosage: 160 MG A DAY
     Route: 048
     Dates: start: 20110420, end: 20110701
  2. LERCANIDIPINE [Suspect]
     Dosage: 10 MG A DAY
     Route: 048
     Dates: start: 20110301
  3. ACETAMINOPHEN [Suspect]
     Dosage: 4 G A DAY
     Route: 048
     Dates: end: 20110701
  4. LYRICA [Suspect]
     Dosage: 600 MG (2 DF) A DAY
     Route: 048
     Dates: start: 20100701
  5. AMITRIPTYLINE HCL [Suspect]
     Dosage: UNK
     Route: 048
     Dates: start: 20110401, end: 20110701

REACTIONS (3)
  - CYTOMEGALOVIRUS TEST POSITIVE [None]
  - HEPATIC STEATOSIS [None]
  - CYTOLYTIC HEPATITIS [None]
